FAERS Safety Report 10538043 (Version 1)
Quarter: 2014Q4

REPORT INFORMATION
  Report Type: Spontaneous
  Country: PT (occurrence: PT)
  Receive Date: 20141023
  Receipt Date: 20141023
  Transmission Date: 20150529
  Serious: Yes (Other)
  Sender: FDA-Public Use
  Company Number: PT-TEVA-516546ISR

PATIENT
  Age: 45 Year
  Sex: Female

DRUGS (2)
  1. TROSPIUM CHLORIDE. [Concomitant]
     Active Substance: TROSPIUM CHLORIDE
     Indication: CYSTITIS
     Dosage: 20MG
     Route: 065
  2. COTRIMOXAZOLE [Suspect]
     Active Substance: SULFAMETHOXAZOLE\TRIMETHOPRIM
     Indication: CYSTITIS
     Dosage: SULFAMETHOXAZOLE 800MG / TRIMETHOPRIM 160MG
     Route: 048

REACTIONS (3)
  - Narrow anterior chamber angle [Recovered/Resolved]
  - Myopia [Recovered/Resolved]
  - Ocular hypertension [Recovered/Resolved]
